FAERS Safety Report 16862189 (Version 1)
Quarter: 2019Q3

REPORT INFORMATION
  Report Type: Spontaneous
  Country: US (occurrence: US)
  Receive Date: 20190927
  Receipt Date: 20190927
  Transmission Date: 20191005
  Serious: No
  Sender: FDA-Public Use
  Company Number: US-GLAXOSMITHKLINE-US2019173324

PATIENT
  Age: 26 Year
  Sex: Female

DRUGS (1)
  1. ABREVA [Suspect]
     Active Substance: DOCOSANOL
     Indication: ORAL HERPES
     Dosage: UNK, FIVE TIMES A DAY
     Route: 061
     Dates: start: 20190912, end: 20190922

REACTIONS (2)
  - Scab [Unknown]
  - Drug ineffective [Unknown]
